FAERS Safety Report 23857239 (Version 2)
Quarter: 2024Q3

REPORT INFORMATION
  Report Type: Spontaneous
  Country: PL (occurrence: PL)
  Receive Date: 20240515
  Receipt Date: 20240709
  Transmission Date: 20241017
  Serious: Yes (Other)
  Sender: NOVARTIS
  Company Number: PL-002147023-NVSC2024PL100807

PATIENT
  Age: 54 Year
  Sex: Male

DRUGS (1)
  1. KESIMPTA [Suspect]
     Active Substance: OFATUMUMAB
     Indication: Multiple sclerosis
     Dosage: UNK
     Route: 065
     Dates: start: 202303

REACTIONS (5)
  - Acute kidney injury [Unknown]
  - Tubulointerstitial nephritis [Unknown]
  - Uveitis [Unknown]
  - Tubulointerstitial nephritis and uveitis syndrome [Unknown]
  - Visual impairment [Unknown]

NARRATIVE: CASE EVENT DATE: 20240401
